FAERS Safety Report 5876972-5 (Version None)
Quarter: 2008Q3

REPORT INFORMATION
  Report Type: 
  Country: None (occurrence: None)
  Receive Date: 20080910
  Receipt Date: 20080829
  Transmission Date: 20090109
  Serious: Yes (Hospitalization)
  Sender: FDA-Public Use
  Company Number: PHHY2008IT19763

PATIENT
  Sex: Female

DRUGS (1)
  1. DICLOFENAC [Suspect]

REACTIONS (3)
  - ARTHRALGIA [None]
  - ERYTHEMA [None]
  - SERUM SICKNESS [None]
